FAERS Safety Report 18468944 (Version 2)
Quarter: 2020Q4

REPORT INFORMATION
  Report Type: Spontaneous
  Country: AU (occurrence: AU)
  Receive Date: 20201105
  Receipt Date: 20201113
  Transmission Date: 20210114
  Serious: Yes (Hospitalization, Other)
  Sender: FDA-Public Use
  Company Number: AU-ASTRAZENECA-2020SF42876

PATIENT
  Age: 31 Year
  Sex: Male

DRUGS (2)
  1. PREDNISOLONE. [Concomitant]
     Active Substance: PREDNISOLONE
     Indication: ASTHMA
  2. FASENRA [Suspect]
     Active Substance: BENRALIZUMAB
     Indication: ASTHMA
     Route: 058
     Dates: start: 202003

REACTIONS (7)
  - Ill-defined disorder [Unknown]
  - Vasculitis [Unknown]
  - Eosinophilia [Unknown]
  - Eosinophilic granulomatosis with polyangiitis [Unknown]
  - Purpura [Unknown]
  - Haemoptysis [Unknown]
  - Mononeuritis [Unknown]
